FAERS Safety Report 11145900 (Version 3)
Quarter: 2015Q2

REPORT INFORMATION
  Report Type: Spontaneous
  Country: IT (occurrence: IT)
  Receive Date: 20150528
  Receipt Date: 20150615
  Transmission Date: 20150821
  Serious: Yes (Hospitalization)
  Sender: FDA-Public Use
  Company Number: PHHY2015IT063199

PATIENT
  Age: 35 Year
  Sex: Female

DRUGS (2)
  1. ILARIS [Suspect]
     Active Substance: CANAKINUMAB
     Indication: HYPER IGD SYNDROME
     Dosage: 150 MG, CYCLIC (EVERY 5 WEEKS)
     Route: 058
     Dates: start: 20140326, end: 20150319
  2. METHYLPREDNISOLONE. [Concomitant]
     Active Substance: METHYLPREDNISOLONE
     Indication: HYPER IGD SYNDROME
     Dosage: 8 MG, QD
     Route: 048
     Dates: start: 20140716, end: 20150605

REACTIONS (4)
  - Mastitis [Recovered/Resolved]
  - Off label use [Unknown]
  - Breast swelling [Unknown]
  - Breast abscess [Recovered/Resolved]

NARRATIVE: CASE EVENT DATE: 20140326
